FAERS Safety Report 11566398 (Version 2)
Quarter: 2015Q4

REPORT INFORMATION
  Report Type: Spontaneous
  Country: US (occurrence: US)
  Receive Date: 20150929
  Receipt Date: 20151006
  Transmission Date: 20160304
  Serious: Yes (Other)
  Sender: FDA-Public Use
  Company Number: US-AMGEN-USASP2015099894

PATIENT
  Sex: Female

DRUGS (2)
  1. XGEVA [Suspect]
     Active Substance: DENOSUMAB
     Indication: PRODUCT USED FOR UNKNOWN INDICATION
     Dosage: UNK
     Route: 065
     Dates: start: 2014
  2. FLAXEDIL [Concomitant]
     Active Substance: GALLAMINE TRIETHIODIDE
     Dosage: UNK UNK, Q2WK

REACTIONS (4)
  - Pain in jaw [Unknown]
  - Osteonecrosis of jaw [Unknown]
  - Myalgia [Unknown]
  - Arthralgia [Recovered/Resolved]
